FAERS Safety Report 5846359-X (Version None)
Quarter: 2008Q3

REPORT INFORMATION
  Report Type: 
  Country: None (occurrence: None)
  Receive Date: 20080815
  Receipt Date: 20080619
  Transmission Date: 20090109
  Serious: No
  Sender: FDA-Public Use
  Company Number: US-BAYER-200827039NA

PATIENT
  Age: 40 Year
  Sex: Female
  Weight: 51 kg

DRUGS (4)
  1. ULTRAVIST 370 [Suspect]
     Indication: COMPUTERISED TOMOGRAM ABDOMEN
     Dosage: TOTAL DAILY DOSE: 80 ML  UNIT DOSE: 500 ML
     Route: 042
     Dates: start: 20080619, end: 20080619
  2. ZOLOFT [Concomitant]
  3. ULTRAVIST 370 [Concomitant]
     Dates: start: 20080619, end: 20080619
  4. CONTRAST MEDIA [Concomitant]
     Indication: COMPUTERISED TOMOGRAM ABDOMEN
     Route: 048
     Dates: start: 20080619, end: 20080619

REACTIONS (1)
  - URTICARIA [None]
